FAERS Safety Report 24939341 (Version 2)
Quarter: 2025Q1

REPORT INFORMATION
  Report Type: Spontaneous
  Country: DE (occurrence: DE)
  Receive Date: 20250206
  Receipt Date: 20250306
  Transmission Date: 20250408
  Serious: Yes (Hospitalization)
  Sender: PFIZER
  Company Number: DE-ROCHE-10000179473

PATIENT
  Age: 68 Year
  Sex: Male
  Weight: 75 kg

DRUGS (53)
  1. RITUXIMAB [Suspect]
     Active Substance: RITUXIMAB
     Indication: Diffuse large B-cell lymphoma
     Dosage: 768.75 MG, EVERY 3 WEEKS
     Route: 042
     Dates: start: 20240910
  2. RITUXIMAB [Suspect]
     Active Substance: RITUXIMAB
     Dates: start: 20241230
  3. GLOFITAMAB [Suspect]
     Active Substance: GLOFITAMAB
     Indication: Diffuse large B-cell lymphoma
     Dosage: 2.5 MG, EVERY 3 WEEKS
     Route: 042
     Dates: start: 20241008
  4. GLOFITAMAB [Suspect]
     Active Substance: GLOFITAMAB
     Dates: start: 20250107
  5. POLATUZUMAB VEDOTIN [Suspect]
     Active Substance: POLATUZUMAB VEDOTIN
     Indication: Diffuse large B-cell lymphoma
     Dosage: 153 MG, EVERY 3 WEEKS
     Route: 042
     Dates: start: 20240911
  6. POLATUZUMAB VEDOTIN [Suspect]
     Active Substance: POLATUZUMAB VEDOTIN
     Dates: start: 20241231
  7. CYCLOPHOSPHAMIDE [Suspect]
     Active Substance: CYCLOPHOSPHAMIDE
     Indication: Diffuse large B-cell lymphoma
     Dosage: 1537.5 MG, EVERY 3 WEEKS
     Route: 042
     Dates: start: 20240910
  8. CYCLOPHOSPHAMIDE [Suspect]
     Active Substance: CYCLOPHOSPHAMIDE
     Dates: start: 20241230
  9. DOXORUBICIN [Suspect]
     Active Substance: DOXORUBICIN
     Indication: Diffuse large B-cell lymphoma
     Dosage: 102.5 MG, EVERY 3 WEEKS
     Route: 042
     Dates: start: 20240910
  10. DOXORUBICIN [Suspect]
     Active Substance: DOXORUBICIN
     Dates: start: 20241230
  11. PREDNISOLONE [Suspect]
     Active Substance: PREDNISOLONE
     Indication: Diffuse large B-cell lymphoma
     Dosage: 100 MG, EVERY 3 WEEKS
     Route: 048
     Dates: start: 20240910
  12. PREDNISOLONE [Suspect]
     Active Substance: PREDNISOLONE
     Dates: start: 20250103
  13. ACYCLOVIR [Concomitant]
     Active Substance: ACYCLOVIR
     Indication: Prophylaxis
     Dosage: 400 MG, 1X/DAY
     Route: 048
     Dates: start: 20240909
  14. ALLOPURINOL [Concomitant]
     Active Substance: ALLOPURINOL
     Indication: Prophylaxis
     Dosage: 300 MG, 1X/DAY
     Route: 048
     Dates: start: 20240910
  15. METAMIZOL [Concomitant]
     Active Substance: METAMIZOLE SODIUM
     Indication: Pain
     Route: 048
     Dates: start: 20240909
  16. TINZAPARIN [Concomitant]
     Active Substance: TINZAPARIN
     Indication: Prophylaxis
     Dosage: 4500 IU, 1X/DAY
     Route: 058
     Dates: start: 20241121
  17. TINZAPARIN [Concomitant]
     Active Substance: TINZAPARIN
     Dosage: 4500 IU, 1X/DAY
     Route: 058
     Dates: start: 20241219, end: 20241222
  18. TINZAPARIN [Concomitant]
     Active Substance: TINZAPARIN
     Dosage: 4500 IU, 1X/DAY
     Route: 058
     Dates: start: 20241230, end: 20241231
  19. TINZAPARIN [Concomitant]
     Active Substance: TINZAPARIN
     Dosage: 4500 IU, 1X/DAY
     Route: 058
     Dates: start: 20250107
  20. SULFAMETHOXAZOLE\TRIMETHOPRIM [Concomitant]
     Active Substance: SULFAMETHOXAZOLE\TRIMETHOPRIM
     Indication: Prophylaxis
     Route: 048
     Dates: start: 20241204
  21. GRANISETRON [Concomitant]
     Active Substance: GRANISETRON
     Indication: Prophylaxis
     Route: 042
     Dates: start: 20241209, end: 20241209
  22. GRANISETRON [Concomitant]
     Active Substance: GRANISETRON
     Route: 042
     Dates: start: 20241230, end: 20241230
  23. APREPITANT [Concomitant]
     Active Substance: APREPITANT
     Indication: Prophylaxis
     Route: 048
     Dates: start: 20241230, end: 20241230
  24. APREPITANT [Concomitant]
     Active Substance: APREPITANT
     Dosage: 80 MG, 1X/DAY
     Route: 048
     Dates: start: 20241210, end: 20241211
  25. APREPITANT [Concomitant]
     Active Substance: APREPITANT
     Dosage: 80 MG, 1X/DAY
     Route: 048
     Dates: start: 20241231, end: 20250101
  26. APREPITANT [Concomitant]
     Active Substance: APREPITANT
     Dosage: 125 MG, 1X/DAY
     Route: 048
     Dates: start: 20241209, end: 20241209
  27. ACETAMINOPHEN [Concomitant]
     Active Substance: ACETAMINOPHEN
     Indication: Prophylaxis
     Dosage: 1000 MG, 1X/DAY
     Route: 048
     Dates: start: 20241209, end: 20241210
  28. ACETAMINOPHEN [Concomitant]
     Active Substance: ACETAMINOPHEN
     Route: 048
     Dates: start: 20241216, end: 20241216
  29. ACETAMINOPHEN [Concomitant]
     Active Substance: ACETAMINOPHEN
     Route: 048
     Dates: start: 20241217, end: 20241223
  30. ACETAMINOPHEN [Concomitant]
     Active Substance: ACETAMINOPHEN
     Route: 048
  31. ACETAMINOPHEN [Concomitant]
     Active Substance: ACETAMINOPHEN
     Route: 048
     Dates: start: 20250107, end: 20250107
  32. RINGER ACETAT [CALCIUM CHLORIDE;POTASSIUM CHLORIDE] [Concomitant]
     Indication: Prophylaxis
     Route: 042
     Dates: start: 20241121
  33. RINGER ACETAT [CALCIUM CHLORIDE;POTASSIUM CHLORIDE] [Concomitant]
     Route: 042
     Dates: start: 20241217, end: 20241217
  34. RINGER ACETAT [CALCIUM CHLORIDE;POTASSIUM CHLORIDE] [Concomitant]
     Route: 042
     Dates: start: 20241230, end: 20241230
  35. RINGER ACETAT [CALCIUM CHLORIDE;POTASSIUM CHLORIDE] [Concomitant]
     Route: 042
     Dates: start: 20250107, end: 20250107
  36. RINGER ACETAT [CALCIUM CHLORIDE;POTASSIUM CHLORIDE] [Concomitant]
     Dosage: 1000 ML, 1X/DAY
     Route: 042
     Dates: start: 20250110
  37. RINGER ACETAT [CALCIUM CHLORIDE;POTASSIUM CHLORIDE] [Concomitant]
     Route: 042
     Dates: start: 20241210, end: 20241210
  38. RINGER ACETAT [CALCIUM CHLORIDE;POTASSIUM CHLORIDE] [Concomitant]
     Route: 042
     Dates: start: 20241231, end: 20241231
  39. RINGER ACETAT [CALCIUM CHLORIDE;POTASSIUM CHLORIDE] [Concomitant]
     Route: 042
     Dates: start: 20241216, end: 20241216
  40. RINGER ACETAT [CALCIUM CHLORIDE;POTASSIUM CHLORIDE] [Concomitant]
     Route: 042
     Dates: start: 20241219, end: 20241219
  41. PIPERACILLIN SODIUM\TAZOBACTAM SODIUM [Concomitant]
     Active Substance: PIPERACILLIN SODIUM\TAZOBACTAM SODIUM
     Indication: Antibiotic prophylaxis
     Dosage: DRUG DOSE FIRST ADMINISTERED IS 1 OTHER, 3X/DAY
     Route: 042
     Dates: start: 20241217, end: 20241223
  42. PIPERACILLIN SODIUM\TAZOBACTAM SODIUM [Concomitant]
     Active Substance: PIPERACILLIN SODIUM\TAZOBACTAM SODIUM
     Dosage: DRUG DOSE FIRST ADMINISTERED IS 1 OTHER, 3X/DAY
     Route: 042
     Dates: start: 20250110
  43. MESNA [Concomitant]
     Active Substance: MESNA
     Indication: Prophylaxis
     Dosage: 400 MG, 3X/DAY
     Route: 042
     Dates: start: 20241230, end: 20241230
  44. PEGFILGRASTIM [Concomitant]
     Active Substance: PEGFILGRASTIM
     Indication: Prophylaxis
     Route: 042
     Dates: start: 20250101, end: 20250101
  45. HUMAN RED BLOOD CELL [Concomitant]
     Active Substance: HUMAN RED BLOOD CELL
     Indication: Neutropenia
     Route: 042
     Dates: start: 20250109, end: 20250109
  46. BENZYDAMINE/LIDOCAINE [Concomitant]
     Indication: Oropharyngeal pain
     Dosage: DRUG DOSE FIRST ADMINISTERED IS 1 OTHER, 4X/DAY
     Route: 048
     Dates: start: 20250109
  47. CLEMASTINE [Concomitant]
     Active Substance: CLEMASTINE
     Route: 042
     Dates: start: 20241216, end: 20241216
  48. CLEMASTINE [Concomitant]
     Active Substance: CLEMASTINE
     Route: 042
     Dates: start: 20250107, end: 20250107
  49. CLEMASTINE [Concomitant]
     Active Substance: CLEMASTINE
     Dosage: 2 MG, 1X/DAY
     Route: 042
     Dates: start: 20241209, end: 20241209
  50. LACTULOSE [Concomitant]
     Active Substance: LACTULOSE
     Indication: Constipation
     Dates: start: 20250111, end: 20250111
  51. DEXAMETHASONE [Concomitant]
     Active Substance: DEXAMETHASONE
     Indication: Cytokine release syndrome
     Route: 042
     Dates: start: 20241216, end: 20241216
  52. DEXAMETHASONE [Concomitant]
     Active Substance: DEXAMETHASONE
     Dosage: 10 MG, 4X/DAY, GIVEN FOR PROPHYLAXIS IS YES
     Route: 042
     Dates: start: 20241219, end: 20241220
  53. DEXAMETHASONE [Concomitant]
     Active Substance: DEXAMETHASONE
     Route: 042
     Dates: start: 20250107, end: 20250107

REACTIONS (4)
  - Neutropenia [Recovered/Resolved]
  - Cytokine release syndrome [Recovered/Resolved]
  - Off label use [Unknown]
  - Product use issue [Unknown]

NARRATIVE: CASE EVENT DATE: 20240910
